FAERS Safety Report 7602903-3 (Version None)
Quarter: 2011Q3

REPORT INFORMATION
  Report Type: 
  Country: None (occurrence: None)
  Receive Date: 20110701
  Receipt Date: 20110621
  Transmission Date: 20111222
  Serious: Yes (Other)
  Sender: FDA-Public Use
  Company Number: 1000021879

PATIENT
  Age: 57 Year
  Sex: Female

DRUGS (2)
  1. CITALOPRAM HYDROBROMIDE [Suspect]
     Indication: DEPRESSION
     Dosage: 0.4 ML (0.4 ML,1 IN 1 D),ORAL ; 0.2 ML (0.2 ML,1 IN 1 D)
     Route: 048
     Dates: start: 20110502
  2. CITALOPRAM HYDROBROMIDE [Suspect]
     Indication: ANXIETY
     Dosage: 0.4 ML (0.4 ML,1 IN 1 D),ORAL ; 0.2 ML (0.2 ML,1 IN 1 D)
     Route: 048
     Dates: start: 20110502

REACTIONS (2)
  - GASTROINTESTINAL PAIN [None]
  - GINGIVAL BLEEDING [None]
